FAERS Safety Report 15856726 (Version 2)
Quarter: 2019Q1

REPORT INFORMATION
  Report Type: Spontaneous
  Country: UA (occurrence: UA)
  Receive Date: 20190123
  Receipt Date: 20190205
  Transmission Date: 20190417
  Serious: Yes (Death, Hospitalization, Congenital Anomaly)
  Sender: FDA-Public Use
  Company Number: UA-TEVA-2019-UA-1000814

PATIENT

DRUGS (11)
  1. TSEFOSULBIN (CEFOPERAZONE\SULBACTAM) [Suspect]
     Active Substance: CEFOPERAZONE\SULBACTAM
     Indication: SEPSIS
     Dosage: 100 MG/KG DAILY;
     Route: 065
  2. PENTAGLOBIN [Concomitant]
     Active Substance: HUMAN IMMUNOGLOBULIN G
     Indication: IMMUNISATION
     Route: 065
  3. METRONIDAZOLE. [Suspect]
     Active Substance: METRONIDAZOLE
     Indication: SEPSIS
     Dosage: 15 MG/KG DAILY;
     Route: 065
  4. OKTAPLEKS [Concomitant]
     Route: 065
  5. ROMENEM [Suspect]
     Active Substance: MEROPENEM
     Indication: SEPSIS
     Dosage: 120 MG/KG DAILY;
     Route: 065
  6. FLUCONAZOLE. [Suspect]
     Active Substance: FLUCONAZOLE
     Indication: SEPSIS
     Dosage: 12 MG/KG DAILY;
     Route: 065
  7. AMPICILLIN [Suspect]
     Active Substance: AMPICILLIN
     Indication: SEPSIS
     Dosage: 150 MG/KG DAILY;
     Route: 065
  8. PENTOXIFYLLINE. [Concomitant]
     Active Substance: PENTOXIFYLLINE
     Route: 065
  9. FENAMIN [Concomitant]
     Indication: PAIN
     Route: 065
  10. AMIKACIN. [Suspect]
     Active Substance: AMIKACIN
     Indication: SEPSIS
     Dosage: 15 MG/KG DAILY;
     Route: 065
  11. BCG-VACCINE [Suspect]
     Active Substance: BCG VACCINE
     Indication: IMMUNISATION
     Route: 065

REACTIONS (3)
  - Immunodeficiency congenital [Unknown]
  - Condition aggravated [Unknown]
  - Drug ineffective [Fatal]
